FAERS Safety Report 16350184 (Version 1)
Quarter: 2019Q2

REPORT INFORMATION
  Report Type: Report from Study
  Country: US (occurrence: US)
  Receive Date: 20190523
  Receipt Date: 20190523
  Transmission Date: 20190711
  Serious: Yes (Hospitalization)
  Sender: FDA-Public Use
  Company Number: US-BAXTER-2019BAX009897

PATIENT
  Age: 17 Year
  Sex: Female
  Weight: 52.1 kg

DRUGS (16)
  1. DOXORUBICIN HCL [Suspect]
     Active Substance: DOXORUBICIN HYDROCHLORIDE
     Indication: ANAPLASTIC LARGE CELL LYMPHOMA T- AND NULL-CELL TYPES
     Dosage: CYCLIC, OVER 1-15 MIN ON DAYS 4 AND 5; CYCLES 2, 4 AND 6 (CYCLE= 21 DAYS)
     Route: 042
  2. METHOTREXATE SODIUM. [Suspect]
     Active Substance: METHOTREXATE SODIUM
     Indication: ANAPLASTIC LARGE CELL LYMPHOMA T- AND NULL-CELL TYPES
     Dosage: CYCLIC, 7.5-12MG IT ON DAY 1 (AGE BASED DOSING); PROPHASE(CYCLE = 5 DAYS)
     Route: 037
  3. METHOTREXATE SODIUM. [Suspect]
     Active Substance: METHOTREXATE SODIUM
     Dosage: CYCLIC (OVER 3 HOURS ON DAY 1; CYCLES 1, 3 AND 5 (CYCLE= 21 DAYS))
     Route: 042
  4. DEXAMETHASONE. [Suspect]
     Active Substance: DEXAMETHASONE
     Dosage: TOTAL DOSE ADMINISTERED WAS 77.5 MG, LAST DOSE ADMINISTERED
     Route: 048
     Dates: start: 20180811, end: 20180811
  5. CYCLOPHOSPHAMIDE FOR INJECTION, USP [Suspect]
     Active Substance: CYCLOPHOSPHAMIDE
     Dosage: CYCLIC (OVER 15-30 MINUTES ON DAYS 1-5; CYCLES 2, 4 AND 6 (CYCLE= 21 DAYS))
     Route: 042
  6. METHOTREXATE SODIUM. [Suspect]
     Active Substance: METHOTREXATE SODIUM
     Dosage: CYCLIC (OVER 3 HOURS ON DAY 1; CYCLES 2, 4 AND 6 (CYCLE = 21 DAYS))
     Route: 042
  7. DEXAMETHASONE. [Suspect]
     Active Substance: DEXAMETHASONE
     Indication: ANAPLASTIC LARGE CELL LYMPHOMA T- AND NULL-CELL TYPES
     Dosage: CYCLIC (QD ON DAYS 1-2, AND 5MG/M2 PO BID ON DAYS 3-5; PROPHASE(CYCLE = 5 DAYS))
     Route: 048
  8. DEXAMETHASONE. [Suspect]
     Active Substance: DEXAMETHASONE
     Dosage: CYCLIC (BID ON DAYS 1-5; CYCLES 1, 3 AND 5 (CYCLE= 21 DAYS))
     Route: 048
  9. CYCLOPHOSPHAMIDE FOR INJECTION, USP [Suspect]
     Active Substance: CYCLOPHOSPHAMIDE
     Indication: ANAPLASTIC LARGE CELL LYMPHOMA T- AND NULL-CELL TYPES
     Dosage: CYCLIC, OVER 15-30 MINUTES ON DAYS 1 AND 2; PROPHASE(CYCLE = 5 DAYS)
     Route: 042
  10. CRIZOTINIB [Suspect]
     Active Substance: CRIZOTINIB
     Indication: ANAPLASTIC LARGE CELL LYMPHOMA T- AND NULL-CELL TYPES
     Dosage: CYCLIC, ON DAYS 1-21; CYCLES 1, 3 AND 5 (CYCLE= 21 DAYS)
     Route: 048
  11. CRIZOTINIB [Suspect]
     Active Substance: CRIZOTINIB
     Dosage: CYCLIC (ON DAYS 1-21; CYCLES 2, 4 AND 6 (CYCLE= 21 DAYS))
     Route: 048
  12. METHOTREXATE SODIUM. [Suspect]
     Active Substance: METHOTREXATE SODIUM
     Dosage: TOTAL DOSE ADMINISTERED WAS 4620 MG, LAST DOSE ADMINISTERED
     Route: 042
     Dates: start: 20180807, end: 20180807
  13. CYCLOPHOSPHAMIDE FOR INJECTION, USP [Suspect]
     Active Substance: CYCLOPHOSPHAMIDE
     Dosage: TOTAL DOSE ADMINISTERED WAS 1540 MG, LAST DOSE ADMINISTERED
     Route: 042
     Dates: start: 20180811, end: 20180811
  14. DOXORUBICIN HCL [Suspect]
     Active Substance: DOXORUBICIN HYDROCHLORIDE
     Dosage: TOTAL DOSE ADMINISTERED WAS 78 MG, LAST DOSE ADMINISTERED
     Route: 042
     Dates: start: 20180811, end: 20180811
  15. CRIZOTINIB [Suspect]
     Active Substance: CRIZOTINIB
     Dosage: TOTAL DOSE ADMINISTERED WAS 3000 MG, LAST DOSE ADMINISTERED
     Route: 048
     Dates: start: 20180813, end: 20180813
  16. DEXAMETHASONE. [Suspect]
     Active Substance: DEXAMETHASONE
     Dosage: CYCLIC (BID ON DAYS 1-5; CYCLES 2, 4 AND 6 (CYCLE= 21 DAYS))
     Route: 048

REACTIONS (1)
  - Dehydration [Recovering/Resolving]

NARRATIVE: CASE EVENT DATE: 20180814
